FAERS Safety Report 14793980 (Version 3)
Quarter: 2018Q2

REPORT INFORMATION
  Report Type: Spontaneous
  Country: US (occurrence: US)
  Receive Date: 20180423
  Receipt Date: 20180517
  Transmission Date: 20180711
  Serious: Yes (Death, Hospitalization, Other)
  Sender: FDA-Public Use
  Company Number: US-GILEAD-2018-0334334

PATIENT
  Age: 55 Year
  Sex: Female
  Weight: 53.79 kg

DRUGS (8)
  1. MAGNESIUM GLUCONATE [Concomitant]
     Active Substance: MAGNESIUM GLUCONATE
  2. PANTOPRAZOLE [Concomitant]
     Active Substance: PANTOPRAZOLE
  3. IBUPROFEN. [Concomitant]
     Active Substance: IBUPROFEN
  4. PROMETHAZINE [Concomitant]
     Active Substance: PROMETHAZINE\PROMETHAZINE HYDROCHLORIDE
  5. IPRATROPIUM [Concomitant]
     Active Substance: IPRATROPIUM
  6. POTASSIUM GLUCONATE [Concomitant]
     Active Substance: POTASSIUM GLUCONATE
  7. HARVONI [Suspect]
     Active Substance: LEDIPASVIR\SOFOSBUVIR
     Indication: CHRONIC HEPATITIS C
     Dosage: 1 DF, QD
     Route: 048
     Dates: start: 20180312, end: 20180401
  8. SPIRONOLACTONE. [Concomitant]
     Active Substance: SPIRONOLACTONE

REACTIONS (16)
  - Septic shock [Recovered/Resolved]
  - Hepatic failure [Unknown]
  - Multiple organ dysfunction syndrome [Fatal]
  - Asthenia [Unknown]
  - Disseminated intravascular coagulation [Unknown]
  - Mechanical ventilation [Unknown]
  - Hypoxia [Unknown]
  - Anaemia [Unknown]
  - Duodenal ulcer perforation [Fatal]
  - Renal failure [Unknown]
  - Acute kidney injury [Unknown]
  - Malnutrition [Unknown]
  - Renal tubular necrosis [Unknown]
  - Lactic acidosis [Recovered/Resolved]
  - Peritonitis [Unknown]
  - Abdominal abscess [Unknown]

NARRATIVE: CASE EVENT DATE: 201804
